FAERS Safety Report 9819458 (Version 1)
Quarter: 2014Q1

REPORT INFORMATION
  Report Type: Spontaneous
  Country: FR (occurrence: FR)
  Receive Date: 20140115
  Receipt Date: 20140115
  Transmission Date: 20141002
  Serious: Yes (Hospitalization)
  Sender: FDA-Public Use
  Company Number: FR-TEVA-454304ISR

PATIENT
  Age: 43 Year
  Sex: Male

DRUGS (14)
  1. OXALIPLATIN TEVA 5 MG/ML, SOLUTION ? DILUER POUR PERFUSION [Suspect]
     Indication: RECTOSIGMOID CANCER METASTATIC
     Dosage: 170 MILLIGRAM DAILY; FOLFIRINOX PROTOCOL
     Route: 041
     Dates: start: 20131024, end: 20131205
  2. 5-FLUOROURACIL [Concomitant]
     Indication: RECTOSIGMOID CANCER
     Dosage: 4 CURES OF FOLFOX 4 PROTOCOL (NEO-ADJUVANT CHEMOTHERAPY)
     Dates: start: 20100910, end: 20101022
  3. 5-FLUOROURACIL [Concomitant]
     Dosage: 8 CURES OF FOLFOX 4 PROTOCOL (ADJUVANT CHEMOTHERAPY)
     Dates: start: 20110127, end: 20110519
  4. 5-FLUOROURACIL [Concomitant]
     Dosage: FOLFIRINOX PROTOCOL
     Dates: start: 20131024
  5. FOLINIC ACID [Concomitant]
     Indication: RECTOSIGMOID CANCER
     Dosage: 4 CURES OF FOLFOX 4 PROTOCOL (NEO-ADJUVANT CHEMOTHEAPY)
     Dates: start: 20100910, end: 20101022
  6. FOLINIC ACID [Concomitant]
     Dosage: 8 CURES OF FOLFOX 4 PROTOCOL (ADJUVANT CHEMOTHERAPY)
     Dates: start: 20110127, end: 20110519
  7. FOLINIC ACID [Concomitant]
     Dosage: FOLFIRINOX PROTOCOL
     Dates: start: 20131024
  8. CRESTOR 5MG [Concomitant]
     Dosage: 5 MILLIGRAM DAILY;
  9. ESOMEPRAZOLE [Concomitant]
     Dosage: 20 MILLIGRAM DAILY;
  10. ASPEGIC 250 MG [Concomitant]
     Dosage: 250 MILLIGRAM DAILY;
  11. LODOZ 10/6.25 [Concomitant]
     Dosage: 1 DOSAGE FORMS DAILY;
  12. SOLUMEDROL [Concomitant]
     Indication: PREMEDICATION
     Route: 040
  13. ZOPHREN [Concomitant]
     Indication: PREMEDICATION
     Route: 040
  14. IRINOTECAN [Concomitant]
     Indication: RECTOSIGMOID CANCER
     Dosage: FOLFIRINOX PROTOCOL
     Dates: start: 20131024

REACTIONS (5)
  - Rash maculo-papular [Recovered/Resolved]
  - Infusion related reaction [Recovered/Resolved]
  - Oxygen saturation decreased [Recovered/Resolved]
  - Pruritus [Recovered/Resolved]
  - Feeling hot [Recovered/Resolved]
